FAERS Safety Report 4674317-X (Version None)
Quarter: 2005Q2

REPORT INFORMATION
  Report Type: 
  Country: None (occurrence: None)
  Receive Date: 20050526
  Receipt Date: 20050510
  Transmission Date: 20051028
  Serious: Yes (Other)
  Sender: FDA-Public Use
  Company Number: PHEH2005US05375

PATIENT
  Age: 43 Year
  Sex: Female

DRUGS (3)
  1. FEMARA [Suspect]
     Indication: BREAST CANCER
     Dosage: 2.5 MG, QD
     Route: 048
     Dates: start: 20000101
  2. FEMARA [Suspect]
     Dosage: 2.5 MG, QD
     Route: 048
  3. FEMHRT [Suspect]
     Dosage: 1MG/5MCG QD
     Route: 048

REACTIONS (10)
  - ABDOMINAL DISTENSION [None]
  - BACK PAIN [None]
  - GENERAL PHYSICAL CONDITION ABNORMAL [None]
  - MALIGNANT NEOPLASM PROGRESSION [None]
  - MEDICATION ERROR [None]
  - METASTASES TO OVARY [None]
  - METRORRHAGIA [None]
  - OOPHORECTOMY [None]
  - POSITRON EMISSION TOMOGRAM ABNORMAL [None]
  - TUMOUR MARKER INCREASED [None]
